FAERS Safety Report 25874679 (Version 3)
Quarter: 2025Q4

REPORT INFORMATION
  Report Type: Spontaneous
  Country: JP (occurrence: JP)
  Receive Date: 20251002
  Receipt Date: 20251125
  Transmission Date: 20260117
  Serious: Yes (Hospitalization)
  Sender: SUNOVION
  Company Number: JP-SMPA-2025SMP008485

PATIENT

DRUGS (3)
  1. LATUDA [Suspect]
     Active Substance: LURASIDONE HYDROCHLORIDE
     Indication: Product used for unknown indication
     Dosage: 80 MG, QD
     Route: 048
  2. BLONANSERIN [Suspect]
     Active Substance: BLONANSERIN
     Indication: Schizophrenia
     Dosage: 80 MG, QD
     Route: 062
  3. REXULTI [Suspect]
     Active Substance: BREXPIPRAZOLE
     Indication: Product used for unknown indication
     Dosage: 4 MG, QD
     Route: 048

REACTIONS (2)
  - Mental disorder [Recovered/Resolved]
  - Somnolence [Recovered/Resolved]
